FAERS Safety Report 7958388-0 (Version None)
Quarter: 2011Q4

REPORT INFORMATION
  Report Type: 
  Country: None (occurrence: None)
  Receive Date: 20111205
  Receipt Date: 20111128
  Transmission Date: 20120403
  Serious: Yes (Death, Life-Threatening, Hospitalization, Disabling, Other)
  Sender: FDA-Public Use
  Company Number: US-MERCK-1111USA03180

PATIENT
  Age: 26 Year
  Sex: Male

DRUGS (8)
  1. ADDERALL TABLETS [Concomitant]
     Route: 065
     Dates: end: 20111006
  2. LUVOX [Concomitant]
     Route: 065
     Dates: end: 20111006
  3. PEG-INTRON [Suspect]
     Indication: HEPATITIS C
     Route: 058
     Dates: start: 20110722, end: 20111006
  4. ENTOCORT EC [Concomitant]
     Route: 065
     Dates: end: 20111006
  5. VITAMINS (UNSPECIFIED) [Concomitant]
     Route: 065
     Dates: end: 20111006
  6. FOSAMAX [Suspect]
     Route: 048
     Dates: end: 20111006
  7. HUMIRA [Concomitant]
     Route: 065
     Dates: end: 20111006
  8. ATENOLOL [Concomitant]
     Route: 065
     Dates: end: 20111006

REACTIONS (2)
  - PNEUMONIA [None]
  - RESPIRATORY FAILURE [None]
